FAERS Safety Report 4318431-7 (Version None)
Quarter: 2004Q1

REPORT INFORMATION
  Report Type: 
  Country: None (occurrence: None)
  Receive Date: 20040315
  Receipt Date: 20040302
  Transmission Date: 20041129
  Serious: No
  Sender: FDA-Public Use
  Company Number: 03P-020-0241246-00

PATIENT
  Age: 42 Year
  Sex: Male
  Weight: 75 kg

DRUGS (3)
  1. KALETRA [Suspect]
     Indication: HIV INFECTION
     Dosage: PER ORAL
     Route: 048
  2. LAMIVUDINE [Concomitant]
  3. STAVUDINE [Concomitant]

REACTIONS (3)
  - LIPODYSTROPHY ACQUIRED [None]
  - PHLEBOTHROMBOSIS [None]
  - PULMONARY EMBOLISM [None]
